FAERS Safety Report 9930871 (Version 2)
Quarter: 2014Q1

REPORT INFORMATION
  Report Type: Spontaneous
  Country: US (occurrence: US)
  Receive Date: 20140227
  Receipt Date: 20140227
  Transmission Date: 20141002
  Serious: No
  Sender: FDA-Public Use
  Company Number: US-AMGEN-USASP2014005866

PATIENT
  Age: 9 Year
  Sex: Male
  Weight: 23.5 kg

DRUGS (3)
  1. ENBREL [Suspect]
     Indication: JUVENILE IDIOPATHIC ARTHRITIS
     Dosage: 17.5 MG, QWK
     Route: 058
     Dates: start: 20140119
  2. ENBREL [Suspect]
     Indication: PSORIATIC ARTHROPATHY
  3. MELOXICAM [Concomitant]
     Indication: ARTHRITIS
     Dosage: 3.75 MG, QD
     Route: 048

REACTIONS (1)
  - Nasopharyngitis [Recovering/Resolving]
